FAERS Safety Report 7872428-9 (Version None)
Quarter: 2011Q4

REPORT INFORMATION
  Report Type: 
  Country: None (occurrence: None)
  Receive Date: 20111030
  Receipt Date: 20111017
  Transmission Date: 20120403
  Serious: Yes (Other)
  Sender: FDA-Public Use
  Company Number: GB-MYLANLABS-2011S1021734

PATIENT
  Age: 11 Year
  Sex: Male

DRUGS (4)
  1. MYCOPHENOLATE MOFETIL [Suspect]
     Indication: IMMUNOSUPPRESSION
  2. FLUCONAZOLE [Suspect]
     Indication: IMMUNOSUPPRESSION
  3. PREDNISOLONE [Suspect]
     Indication: IMMUNOSUPPRESSION
  4. AZATHIOPRINE [Suspect]
     Indication: IMMUNOSUPPRESSION

REACTIONS (4)
  - EPSTEIN-BARR VIRUS INFECTION [None]
  - CONVULSION [None]
  - CENTRAL NERVOUS SYSTEM LESION [None]
  - EPSTEIN-BARR VIRUS ASSOCIATED LYMPHOPROLIFERATIVE DISORDER [None]
